FAERS Safety Report 8250050-2 (Version None)
Quarter: 2012Q2

REPORT INFORMATION
  Report Type: 
  Country: None (occurrence: None)
  Receive Date: 20120402
  Receipt Date: 20120327
  Transmission Date: 20120825
  Serious: Yes (Death, Hospitalization)
  Sender: FDA-Public Use
  Company Number: PE-ASTRAZENECA-2012SE07836

PATIENT
  Age: 85 Year
  Sex: Female

DRUGS (1)
  1. ATACAND [Suspect]
     Indication: HYPERTENSION
     Route: 048
     Dates: start: 20071021

REACTIONS (2)
  - RESPIRATORY FAILURE [None]
  - CARDIAC ARREST [None]
